FAERS Safety Report 9984270 (Version 1)
Quarter: 2014Q1

REPORT INFORMATION
  Report Type: Report from Study
  Country: US (occurrence: US)
  Receive Date: 20140307
  Receipt Date: 20140307
  Transmission Date: 20141002
  Serious: No
  Sender: FDA-Public Use
  Company Number: US-ABBVIE-13P-163-1182633-00

PATIENT
  Age: 62 Year
  Sex: Male

DRUGS (11)
  1. HUMIRA [Suspect]
     Indication: CROHN^S DISEASE
     Dates: start: 20130927, end: 20130927
  2. HUMIRA [Suspect]
     Dates: start: 20131011, end: 20131011
  3. HUMIRA [Suspect]
     Dates: start: 20131025, end: 20131025
  4. HUMIRA [Suspect]
     Dates: start: 20131122, end: 20131122
  5. HUMIRA [Suspect]
     Dates: start: 20131206, end: 20131206
  6. METFORMIN [Concomitant]
     Indication: DIABETES MELLITUS
  7. HYDROCHLOROTHIAZIDE [Concomitant]
     Indication: HYPERTENSION
  8. LIPITOR [Concomitant]
     Indication: BLOOD CHOLESTEROL INCREASED
  9. PROBIOTIC [Concomitant]
     Indication: CROHN^S DISEASE
  10. ANTACID [Concomitant]
     Indication: DYSPEPSIA
  11. VITAMINS [Concomitant]
     Indication: ILL-DEFINED DISORDER

REACTIONS (2)
  - Drug administration error [Unknown]
  - Drug dose omission [Unknown]
